FAERS Safety Report 8491634-6 (Version None)
Quarter: 2012Q3

REPORT INFORMATION
  Report Type: 
  Country: None (occurrence: None)
  Receive Date: 20120706
  Receipt Date: 20120628
  Transmission Date: 20120928
  Serious: Yes (Death, Life-Threatening, Other)
  Sender: FDA-Public Use
  Company Number: HK-PFIZER INC-2012155377

PATIENT
  Age: 49 Year
  Sex: Female
  Weight: 57.8 kg

DRUGS (20)
  1. SPIRONOLACTONE [Concomitant]
     Indication: ASCITES
     Dosage: UNK
     Route: 048
     Dates: start: 20120516, end: 20120615
  2. PANTOPRAZOLE [Concomitant]
     Indication: ABDOMINAL DISCOMFORT
     Dosage: UNK
     Route: 048
     Dates: start: 20120422, end: 20120627
  3. LEVOFLOXACIN [Concomitant]
     Indication: PNEUMONIA
     Dosage: UNK
     Route: 042
     Dates: start: 20120627, end: 20120627
  4. CRIZOTINIB [Suspect]
     Indication: NON-SMALL CELL LUNG CANCER
     Dosage: 250 MG, 2X/DAY
     Dates: start: 20120424, end: 20120627
  5. LORAZEPAM [Concomitant]
     Indication: INSOMNIA
     Dosage: INFUSION
     Dates: start: 20120429, end: 20120627
  6. CHLORPHENIRAMINE MALEATE [Concomitant]
     Indication: HYPERSENSITIVITY
     Dosage: INFUSION
     Dates: start: 20120429, end: 20120627
  7. NAPROXEN [Concomitant]
     Indication: PAIN
     Dosage: UNK
     Route: 048
     Dates: start: 20120422, end: 20120627
  8. PREDNISOLONE [Concomitant]
     Indication: HEPATIC PAIN
     Dosage: UNK
     Route: 048
     Dates: start: 20120422, end: 20120621
  9. ACETAMINOPHEN [Concomitant]
     Indication: PAIN
     Dosage: UNK
     Route: 048
     Dates: start: 20120429, end: 20120627
  10. SENNA [Concomitant]
     Indication: CONSTIPATION
     Dosage: UNK
     Route: 048
     Dates: start: 20120429, end: 20120627
  11. ALBUMIN (HUMAN) [Concomitant]
     Dosage: INFUSION
     Dates: start: 20120622, end: 20120623
  12. ZOPICLONE [Concomitant]
     Indication: INSOMNIA
     Dosage: UNK
     Route: 048
     Dates: start: 20120422, end: 20120627
  13. ALBUMIN (HUMAN) [Concomitant]
     Indication: HYPOPROTEINAEMIA
     Dosage: INFUSION
     Dates: start: 20120619, end: 20120620
  14. ALBUMIN (HUMAN) [Concomitant]
     Dosage: INFUSION
     Dates: start: 20120626, end: 20120627
  15. TRAMADOL HYDROCHLORIDE [Concomitant]
     Indication: PAIN
     Dosage: UNK
     Route: 048
     Dates: start: 20120422, end: 20120627
  16. ENZYPLEX [Concomitant]
     Indication: INCREASED APPETITE
     Dosage: UNK
     Route: 048
     Dates: start: 20120422, end: 20120627
  17. SALBUTAMOL SULFATE [Concomitant]
     Indication: DYSPNOEA
     Dosage: INHALE
     Dates: start: 20120627, end: 20120627
  18. METOCLOPRAMIDE HYDROCHLORIDE [Concomitant]
     Indication: NAUSEA
     Dosage: INFUSION
     Dates: start: 20120429, end: 20120627
  19. METOCLOPRAMIDE HYDROCHLORIDE [Concomitant]
     Indication: VOMITING
  20. DOCUSATE SODIUM [Concomitant]
     Indication: CONSTIPATION
     Dosage: UNK
     Route: 048
     Dates: start: 20120516, end: 20120627

REACTIONS (3)
  - DISEASE PROGRESSION [None]
  - ASCITES [None]
  - NON-SMALL CELL LUNG CANCER [None]
